FAERS Safety Report 24159375 (Version 2)
Quarter: 2024Q3

REPORT INFORMATION
  Report Type: Spontaneous
  Country: IN (occurrence: IN)
  Receive Date: 20240731
  Receipt Date: 20240802
  Transmission Date: 20241017
  Serious: Yes (Other)
  Sender: NOVARTIS
  Company Number: IN-SANDOZ-SDZ2024IN050903

PATIENT
  Sex: Male

DRUGS (2)
  1. TACROLIMUS [Suspect]
     Active Substance: TACROLIMUS
     Indication: Renal transplant
     Dosage: 2 DOSAGE FORM, QD (1 DOSAGE FORM, BID)
     Route: 048
  2. MYFORTIC [Suspect]
     Active Substance: MYCOPHENOLATE SODIUM
     Indication: Product used for unknown indication
     Dosage: 540 MG
     Route: 065

REACTIONS (9)
  - Cardiac failure acute [Recovering/Resolving]
  - Hyperbilirubinaemia [Recovering/Resolving]
  - Acute kidney injury [Recovering/Resolving]
  - Pneumonia [Recovering/Resolving]
  - Lymphadenopathy mediastinal [Recovering/Resolving]
  - Blood glucose increased [Recovering/Resolving]
  - Weight increased [Unknown]
  - Ultrasound kidney abnormal [Unknown]
  - Off label use [Unknown]
